FAERS Safety Report 14527243 (Version 3)
Quarter: 2018Q1

REPORT INFORMATION
  Report Type: Spontaneous
  Country: JP (occurrence: JP)
  Receive Date: 20180213
  Receipt Date: 20180330
  Transmission Date: 20180509
  Serious: Yes (Other)
  Sender: FDA-Public Use
  Company Number: JP-SA-2018SA035649

PATIENT
  Age: 61 Year
  Sex: Male

DRUGS (3)
  1. APIDRA [Suspect]
     Active Substance: INSULIN GLULISINE
     Indication: HYPOGLYCAEMIA UNAWARENESS
     Route: 058
  2. LANTUS SOLOSTAR [Suspect]
     Active Substance: INSULIN GLARGINE
     Indication: HYPOGLYCAEMIA UNAWARENESS
     Route: 051
  3. SOLOSTAR [Suspect]
     Active Substance: DEVICE
     Indication: HYPOGLYCAEMIA UNAWARENESS

REACTIONS (4)
  - Anti-insulin antibody increased [Recovered/Resolved]
  - Blood glucose decreased [Recovered/Resolved]
  - Blood insulin increased [Recovered/Resolved]
  - Insulin autoimmune syndrome [Recovered/Resolved]
